FAERS Safety Report 5314273-4 (Version None)
Quarter: 2007Q1

REPORT INFORMATION
  Report Type: 
  Country: None (occurrence: None)
  Receive Date: 20070130
  Receipt Date: 20060406
  Transmission Date: 20070707
  Serious: Yes (Other)
  Sender: FDA-Public Use
  Company Number: 144412USA

PATIENT
  Sex: Female

DRUGS (1)
  1. COPAXONE [Suspect]
     Indication: MULTIPLE SCLEROSIS
     Dosage: (20 MG), SUBCUTANEOUS
     Route: 058
     Dates: start: 20020101, end: 20040901

REACTIONS (5)
  - ANAPHYLACTIC SHOCK [None]
  - DIARRHOEA [None]
  - ERYTHEMA [None]
  - THROAT TIGHTNESS [None]
  - VOMITING [None]
